FAERS Safety Report 5374558-2 (Version None)
Quarter: 2007Q2

REPORT INFORMATION
  Report Type: 
  Country: None (occurrence: None)
  Receive Date: 20070625
  Receipt Date: 20060515
  Transmission Date: 20071010
  Serious: Yes (Hospitalization)
  Sender: FDA-Public Use
  Company Number: SU-2006-004949

PATIENT
  Sex: Male

DRUGS (2)
  1. BENICAR [Suspect]
     Indication: DRUG USE FOR UNKNOWN INDICATION
     Dosage: MG (MG, UNKNOWN), PER ORAL
     Route: 048
     Dates: start: 20050801
  2. LOTENSIN (BENAZEPRIL HYDROCHLORIDE (UNKNOWN) (BENAZEPRIL HYDROCHLORIDE [Concomitant]

REACTIONS (1)
  - ANGIOEDEMA [None]
